FAERS Safety Report 7249498-4 (Version None)
Quarter: 2011Q1

REPORT INFORMATION
  Report Type: 
  Country: None (occurrence: None)
  Receive Date: 20110121
  Receipt Date: 20110121
  Transmission Date: 20110831
  Serious: No
  Sender: FDA-Public Use
  Company Number: None

PATIENT
  Age: 49 Year
  Sex: Male
  Weight: 67.6 kg

DRUGS (1)
  1. SULFAMETHOXAZOLE AND TRIMETHOPRIM [Suspect]
     Dosage: 1 TAB BID PO
     Route: 048
     Dates: start: 20100801, end: 20100804

REACTIONS (5)
  - FURUNCLE [None]
  - CHOLANGITIS [None]
  - ADVERSE DRUG REACTION [None]
  - MYALGIA [None]
  - PANCREATITIS [None]
